FAERS Safety Report 14135611 (Version 2)
Quarter: 2018Q1

REPORT INFORMATION
  Report Type: Report from Study
  Country: US (occurrence: US)
  Receive Date: 20171026
  Receipt Date: 20180123
  Transmission Date: 20180508
  Serious: No
  Sender: FDA-Public Use
  Company Number: US-AMGEN-USASL2017135118

PATIENT
  Sex: Female

DRUGS (1)
  1. REPATHA [Suspect]
     Active Substance: EVOLOCUMAB
     Indication: BLOOD CHOLESTEROL INCREASED
     Dosage: 420 MG, QMO
     Route: 065

REACTIONS (7)
  - Application site erythema [Unknown]
  - Pruritus [Unknown]
  - Application site pruritus [Unknown]
  - Application site warmth [Unknown]
  - Application site swelling [Unknown]
  - Weight increased [Unknown]
  - Blood glucose increased [Unknown]
